FAERS Safety Report 4457269-7 (Version None)
Quarter: 2004Q3

REPORT INFORMATION
  Report Type: 
  Country: None (occurrence: None)
  Receive Date: 20040921
  Receipt Date: 20040908
  Transmission Date: 20050211
  Serious: No
  Sender: FDA-Public Use
  Company Number: 04H-163-0273207-00

PATIENT

DRUGS (1)
  1. HEPARIN SODIUM [Suspect]
     Indication: ANTICOAGULANT THERAPY
     Dosage: 5000 UNIT, 2 IN 1 D, SUBCUTANEOUS
     Route: 058

REACTIONS (3)
  - EXTRADURAL HAEMATOMA [None]
  - PARAPARESIS [None]
  - POST PROCEDURAL HAEMORRHAGE [None]
